FAERS Safety Report 8827956 (Version 1)
Quarter: 2012Q4

REPORT INFORMATION
  Report Type: 
  Country: US (occurrence: US)
  Receive Date: 20121005
  Receipt Date: 20121005
  Transmission Date: 20130627
  Serious: Yes (Other)
  Sender: FDA-Public Use
  Company Number: US-JNJFOC-20120912522

PATIENT
  Age: 76 Year
  Sex: Female

DRUGS (5)
  1. BENADRYL [Suspect]
     Indication: PRODUCT USED FOR UNKNOWN INDICATION
     Route: 048
  2. PEPTO BISMOL [Concomitant]
     Indication: LACTOSE INTOLERANCE
     Route: 065
  3. INDERAL [Concomitant]
     Indication: HEART RATE IRREGULAR
     Route: 065
  4. XANAX [Concomitant]
     Indication: ANXIETY
     Route: 065
  5. SYSTANE [Concomitant]
     Indication: DRY EYE
     Route: 047

REACTIONS (2)
  - Disorientation [Recovered/Resolved]
  - Dizziness [Recovered/Resolved]
